FAERS Safety Report 20629938 (Version 2)
Quarter: 2022Q2

REPORT INFORMATION
  Report Type: Spontaneous
  Country: ZA (occurrence: ZA)
  Receive Date: 20220324
  Receipt Date: 20220405
  Transmission Date: 20220721
  Serious: Yes (Hospitalization, Other)
  Sender: FDA-Public Use
  Company Number: ZA-CELLTRION INC.-2022ZA003159

PATIENT

DRUGS (1)
  1. INFLIXIMAB [Suspect]
     Active Substance: INFLIXIMAB
     Indication: Crohn^s disease
     Dosage: 400 MG
     Route: 042
     Dates: start: 20211202, end: 20220318

REACTIONS (2)
  - Crohn^s disease [Unknown]
  - Underdose [Unknown]

NARRATIVE: CASE EVENT DATE: 20220308
